FAERS Safety Report 20517912 (Version 5)
Quarter: 2023Q2

REPORT INFORMATION
  Report Type: Other
  Country: US (occurrence: None)
  Receive Date: 20220225
  Receipt Date: 20230406
  Transmission Date: 20230722
  Serious: Yes (Other)
  Sender: FDA-Public Use
  Company Number: US-ROCHE-2831344

PATIENT
  Sex: Male
  Weight: 79.450 kg

DRUGS (24)
  1. ESBRIET [Suspect]
     Active Substance: PIRFENIDONE
     Indication: Pulmonary fibrosis
     Dosage: TAKE 1 TABLET THREE TIMES A DAY WITH MEALS (DAY 1 THROUGH 7: 1 TABLET BY MOUTH THREE TIMES A DAY WIT
     Route: 048
  2. ESBRIET [Suspect]
     Active Substance: PIRFENIDONE
     Indication: Idiopathic pulmonary fibrosis
     Dosage: 2 PILLS 3 TIMES PER DAY, ONGOINGYES
     Route: 048
     Dates: start: 20180701
  3. ESBRIET [Suspect]
     Active Substance: PIRFENIDONE
     Dosage: 3 PILLLS 3 TIMES A DAY
     Route: 048
  4. ESBRIET [Suspect]
     Active Substance: PIRFENIDONE
     Dosage: 2 PILLS FOR 4 DAYS
     Route: 048
  5. ESBRIET [Suspect]
     Active Substance: PIRFENIDONE
     Dosage: 9 PILLS A DAY
     Route: 048
  6. ESBRIET [Suspect]
     Active Substance: PIRFENIDONE
     Dosage: 1 PILL FOR 3 DAYS
     Route: 048
  7. ESBRIET [Suspect]
     Active Substance: PIRFENIDONE
     Indication: Idiopathic pulmonary fibrosis
     Route: 048
     Dates: start: 201807
  8. OXYGEN [Concomitant]
     Active Substance: OXYGEN
     Dates: start: 202102
  9. ALBUTEROL SULFATE [Concomitant]
     Active Substance: ALBUTEROL SULFATE
  10. ASPIRIN [Concomitant]
     Active Substance: ASPIRIN
  11. AZELASTINE [Concomitant]
     Active Substance: AZELASTINE
  12. BENAZEPRIL [Concomitant]
     Active Substance: BENAZEPRIL HYDROCHLORIDE
  13. CLOPIDOGREL [Concomitant]
     Active Substance: CLOPIDOGREL BISULFATE
  14. DOXYCYCLINE [Concomitant]
     Active Substance: DOXYCYCLINE
  15. EMPAGLIFLOZIN [Concomitant]
     Active Substance: EMPAGLIFLOZIN
  16. ESOMEPRAZOLE [Concomitant]
     Active Substance: ESOMEPRAZOLE
  17. GEMFIBROZIL [Concomitant]
     Active Substance: GEMFIBROZIL
  18. METFORMIN [Concomitant]
     Active Substance: METFORMIN HYDROCHLORIDE
  19. METOPROLOL [Concomitant]
     Active Substance: METOPROLOL
  20. ROSUVASTATIN [Concomitant]
     Active Substance: ROSUVASTATIN
  21. TADALAFIL [Concomitant]
     Active Substance: TADALAFIL
  22. TUMS [Concomitant]
     Active Substance: CALCIUM CARBONATE
  23. JARDIANCE [Concomitant]
     Active Substance: EMPAGLIFLOZIN
  24. PLAVIX [Concomitant]
     Active Substance: CLOPIDOGREL BISULFATE

REACTIONS (19)
  - Diabetes mellitus [Unknown]
  - Sleep apnoea syndrome [Unknown]
  - Paranasal sinus hyposecretion [Unknown]
  - Sinus congestion [Unknown]
  - Diarrhoea [Not Recovered/Not Resolved]
  - Dizziness [Recovered/Resolved with Sequelae]
  - Cardiac disorder [Unknown]
  - Respiratory rate decreased [Unknown]
  - Abdominal discomfort [Recovering/Resolving]
  - Hypoacusis [Unknown]
  - Nausea [Unknown]
  - Insomnia [Not Recovered/Not Resolved]
  - Abdominal pain upper [Recovered/Resolved with Sequelae]
  - Cough [Recovered/Resolved with Sequelae]
  - Fatigue [Not Recovered/Not Resolved]
  - Dyspepsia [Recovered/Resolved]
  - Weight decreased [Unknown]
  - Dysphonia [Unknown]
  - Condition aggravated [Unknown]

NARRATIVE: CASE EVENT DATE: 20180701
